FAERS Safety Report 4339677-8 (Version None)
Quarter: 2004Q1

REPORT INFORMATION
  Report Type: 
  Country: None (occurrence: None)
  Receive Date: 20040329
  Receipt Date: 20031226
  Transmission Date: 20041129
  Serious: No
  Sender: FDA-Public Use
  Company Number: 03P-163-0245739-00

PATIENT
  Age: 51 Year
  Sex: Female
  Weight: 95.2554 kg

DRUGS (6)
  1. HUMIRA [Suspect]
     Indication: RHEUMATOID ARTHRITIS
     Dosage: 40 MG, 1 IN 2 WK, SUBCUTANEOUS
     Route: 058
     Dates: start: 20031031
  2. KETOPROFEN [Concomitant]
  3. PREDNISONE [Concomitant]
  4. VICODIN [Concomitant]
  5. LANSOPRAZOLE [Concomitant]
  6. MULTIVITAMIN [Concomitant]

REACTIONS (2)
  - CHEST PAIN [None]
  - COUGH [None]
